FAERS Safety Report 25788435 (Version 1)
Quarter: 2025Q3

REPORT INFORMATION
  Report Type: Spontaneous
  Country: US (occurrence: US)
  Receive Date: 20250910
  Receipt Date: 20250910
  Transmission Date: 20251021
  Serious: No
  Sender: GLAUKOS
  Company Number: US-GLK-000672

PATIENT
  Age: 45 Year
  Sex: Male

DRUGS (2)
  1. PHOTREXA VISCOUS [Suspect]
     Active Substance: RIBOFLAVIN 5^-PHOSPHATE SODIUM
     Indication: Product used for unknown indication
     Dates: start: 20200117, end: 20200117
  2. PHOTREXA [Suspect]
     Active Substance: RIBOFLAVIN 5^-PHOSPHATE SODIUM
     Indication: Product used for unknown indication
     Dates: start: 20200117, end: 20200117

REACTIONS (1)
  - Corneal disorder [Unknown]
